FAERS Safety Report 5879890-1 (Version None)
Quarter: 2008Q3

REPORT INFORMATION
  Report Type: 
  Country: None (occurrence: None)
  Receive Date: 20080911
  Receipt Date: 20080911
  Transmission Date: 20090109
  Serious: No
  Sender: FDA-Public Use
  Company Number: None

PATIENT
  Sex: Male
  Weight: 78.0187 kg

DRUGS (7)
  1. DEPAKOTE ER [Suspect]
     Indication: EPILEPSY
     Dosage: 1000 MG PO QHS
     Route: 048
     Dates: start: 20080619, end: 20080625
  2. ESCITALOPRAM [Concomitant]
  3. PHENOBARBITAL TAB [Concomitant]
  4. PHENYTOIN [Concomitant]
  5. QUETIAPINE [Concomitant]
  6. RISPERIDONE [Concomitant]
  7. TOPIRAMATE [Concomitant]

REACTIONS (3)
  - AMMONIA INCREASED [None]
  - GAIT DISTURBANCE [None]
  - SOMNOLENCE [None]
